FAERS Safety Report 7214858-4 (Version None)
Quarter: 2011Q1

REPORT INFORMATION
  Report Type: 
  Country: None (occurrence: None)
  Receive Date: 20110107
  Receipt Date: 20100407
  Transmission Date: 20110831
  Serious: No
  Sender: FDA-Public Use
  Company Number: A0853937A

PATIENT
  Age: 70 Year
  Sex: Male

DRUGS (11)
  1. ZETIA [Concomitant]
  2. QUINAPRIL [Concomitant]
  3. METOPROLOL [Concomitant]
  4. TRICOR [Concomitant]
  5. NOVOLOG [Concomitant]
  6. PLAVIX [Concomitant]
  7. JANUVIA [Concomitant]
  8. SIMVASTATIN [Concomitant]
  9. LANTUS [Concomitant]
  10. LOVAZA [Suspect]
     Dosage: 3CAP PER DAY
     Route: 048
     Dates: start: 20090101
  11. AMLODIPINE [Concomitant]

REACTIONS (1)
  - ABNORMAL FAECES [None]
